FAERS Safety Report 7563438-X (Version None)
Quarter: 2011Q2

REPORT INFORMATION
  Report Type: 
  Country: None (occurrence: None)
  Receive Date: 20110622
  Receipt Date: 20110614
  Transmission Date: 20111010
  Serious: Yes (Hospitalization)
  Sender: FDA-Public Use
  Company Number: B0727715A

PATIENT
  Sex: Female

DRUGS (1)
  1. LAMICTAL [Suspect]
     Indication: PSYCHOTIC DISORDER
     Route: 065
     Dates: start: 20110215

REACTIONS (2)
  - HEADACHE [None]
  - INCORRECT DOSE ADMINISTERED [None]
